FAERS Safety Report 11941496 (Version 1)
Quarter: 2016Q1

REPORT INFORMATION
  Report Type: Spontaneous
  Country: US (occurrence: US)
  Receive Date: 20160122
  Receipt Date: 20160122
  Transmission Date: 20160526
  Serious: Yes (Hospitalization)
  Sender: FDA-Public Use
  Company Number: US-ASTRAZENECA-2016SE04923

PATIENT
  Age: 42 Year
  Sex: Female

DRUGS (5)
  1. PRILOSEC [Suspect]
     Active Substance: OMEPRAZOLE MAGNESIUM
     Indication: GASTRIC ULCER
     Route: 048
     Dates: start: 1995, end: 2002
  2. NEXIUM I.V. [Suspect]
     Active Substance: ESOMEPRAZOLE SODIUM
     Indication: GASTRIC ULCER
     Route: 042
     Dates: start: 2002, end: 2002
  3. NEXIUM [Suspect]
     Active Substance: ESOMEPRAZOLE MAGNESIUM
     Indication: GASTRIC ULCER
     Route: 048
     Dates: start: 2002, end: 2002
  4. NEXIUM [Suspect]
     Active Substance: ESOMEPRAZOLE MAGNESIUM
     Indication: GASTRIC ULCER
     Route: 048
  5. PRILOSEC [Suspect]
     Active Substance: OMEPRAZOLE MAGNESIUM
     Indication: GASTRIC ULCER
     Dosage: GENERIC PRILOSEC
     Route: 065
     Dates: start: 201601

REACTIONS (9)
  - Irritable bowel syndrome [Unknown]
  - Abdominal pain upper [Unknown]
  - Osteopenia [Unknown]
  - Off label use [Unknown]
  - Constipation [Unknown]
  - Gastric disorder [Unknown]
  - Hypertension [Unknown]
  - Migraine [Unknown]
  - Hiatus hernia [Unknown]

NARRATIVE: CASE EVENT DATE: 1995
